FAERS Safety Report 9973543 (Version 1)
Quarter: 2014Q1

REPORT INFORMATION
  Report Type: Spontaneous
  Country: US (occurrence: None)
  Receive Date: 20140218
  Receipt Date: 20140218
  Transmission Date: 20141002
  Serious: Yes (Other)
  Sender: FDA-Public Use
  Company Number: OMPQ-PR-1312S-1470

PATIENT
  Age: 52 Year
  Sex: Female

DRUGS (3)
  1. OMNIPAQUE [Suspect]
     Indication: LIVER DISORDER
     Dosage: SINGLE
     Route: 042
     Dates: start: 20131224, end: 20131224
  2. OMNIPAQUE [Suspect]
     Indication: DIAGNOSTIC PROCEDURE
     Dosage: SINGLE
     Route: 042
     Dates: start: 20131224, end: 20131224
  3. ZYRTECT(CETRIZINE HYDROCHLORIDE) [Concomitant]

REACTIONS (2)
  - Pruritus [None]
  - Urticaria [None]
